FAERS Safety Report 8990146 (Version 1)
Quarter: 2012Q4

REPORT INFORMATION
  Report Type: 
  Country: US (occurrence: US)
  Receive Date: 20121228
  Receipt Date: 20121228
  Transmission Date: 20130627
  Serious: Yes (Hospitalization, Other)
  Sender: FDA-Public Use
  Company Number: US-JNJFOC-20121209509

PATIENT
  Age: 39 Year
  Sex: Male

DRUGS (2)
  1. INVEGA SUSTENNA [Suspect]
     Indication: SCHIZOPHRENIA
     Route: 030
  2. AMOXICILLIN [Suspect]
     Indication: INFECTIOUS MONONUCLEOSIS
     Route: 065
     Dates: start: 2012

REACTIONS (3)
  - Infectious mononucleosis [Unknown]
  - Schizophrenia [Unknown]
  - Hospitalisation [Recovered/Resolved]
